FAERS Safety Report 13598591 (Version 1)
Quarter: 2017Q2

REPORT INFORMATION
  Report Type: Spontaneous
  Country: US (occurrence: US)
  Receive Date: 20170531
  Receipt Date: 20170531
  Transmission Date: 20170830
  Serious: No
  Sender: FDA-Public Use
  Company Number: US-SA-2017SA057118

PATIENT
  Sex: Male

DRUGS (2)
  1. SOLIQUA 100/33 [Suspect]
     Active Substance: INSULIN GLARGINE\LIXISENATIDE
     Route: 065
  2. TANZEUM [Concomitant]
     Active Substance: ALBIGLUTIDE
     Route: 065

REACTIONS (2)
  - Injection site pruritus [Unknown]
  - Injection site bruising [Unknown]
